FAERS Safety Report 13583671 (Version 2)
Quarter: 2017Q2

REPORT INFORMATION
  Report Type: Spontaneous
  Country: CA (occurrence: CA)
  Receive Date: 20170526
  Receipt Date: 20170602
  Transmission Date: 20170830
  Serious: Yes (Death, Life-Threatening, Hospitalization, Other)
  Sender: FDA-Public Use
  Company Number: CA-SUN PHARMACEUTICAL INDUSTRIES LTD-2017US-141696

PATIENT
  Age: 28 Month
  Sex: Male

DRUGS (1)
  1. TYLENOL [Suspect]
     Active Substance: ACETAMINOPHEN
     Indication: UPPER RESPIRATORY TRACT INFECTION
     Dosage: OVER-THE-COUNTER PEDIATRIC LIQUID FORMULATION
     Route: 048

REACTIONS (2)
  - Toxicity to various agents [Fatal]
  - Acute hepatic failure [Fatal]
